FAERS Safety Report 22644442 (Version 1)
Quarter: 2023Q2

REPORT INFORMATION
  Report Type: Spontaneous
  Country: GB (occurrence: GB)
  Receive Date: 20230627
  Receipt Date: 20230627
  Transmission Date: 20230722
  Serious: Yes (Other)
  Sender: FDA-Public Use
  Company Number: None

PATIENT
  Age: 82 Year
  Sex: Male

DRUGS (14)
  1. DALTEPARIN SODIUM [Suspect]
     Active Substance: DALTEPARIN SODIUM
     Dosage: UNK
  2. ALLOPURINOL [Concomitant]
     Active Substance: ALLOPURINOL
     Dosage: ONE TO BE TAKEN EACH DAY AFTER FOOD
  3. LANSOPRAZOLE [Concomitant]
     Active Substance: LANSOPRAZOLE
     Dosage: ONE TO BE TAKEN TWICE A DAY
  4. LORATADINE [Concomitant]
     Active Substance: LORATADINE
     Dosage: TWO 5ML SPOONFULS TO BE TAKEN EACH DAY
  5. LORAZEPAM [Concomitant]
     Active Substance: LORAZEPAM
     Dosage: HALF OR ONE (0.5-1MG) TABLET TO TAKEN WHEN REQUIRED FOR AGITATION UPTO A MAX DOSE OF 2MG DAILY.
  6. MEMANTINE [Concomitant]
     Active Substance: MEMANTINE
     Dosage: TAKE 20MG EACH NIGHT
  7. MIRTAZAPINE [Concomitant]
     Active Substance: MIRTAZAPINE
     Dosage: ONE TO BE TAKEN AT NIGHT
  8. ACETAMINOPHEN [Concomitant]
     Active Substance: ACETAMINOPHEN
     Dosage: TWO TO BE TAKEN EVERY 4-6 HOURS UP TO FOUR TIMES A DAY
  9. TERBUTALINE [Concomitant]
     Active Substance: TERBUTALINE
     Dosage: ONE PUFF TO BE INHALED FOUR TIMES A DAY WHEN REQUIRED
  10. ZOLPIDEM [Concomitant]
     Active Substance: ZOLPIDEM TARTRATE
     Indication: Insomnia
     Dosage: 5 MG, ONE TO BE TAKEN AT NIGHT WHEN REQUIRED
  11. BECLOMETHASONE\FORMOTEROL [Concomitant]
     Active Substance: BECLOMETHASONE\FORMOTEROL
     Dosage: TWO PUFFS TO BE INHALED TWICE A DAY
  12. DERMOL [CLOBETASOL PROPIONATE] [Concomitant]
     Dosage: APPLY TO THE SKIN OR USE AS A SOAP SUBSTITUTE EACH DAY
  13. DIETARY SUPPLEMENT [Concomitant]
     Active Substance: DIETARY SUPPLEMENT
     Dosage: ONE SCOOP WHEN REQUIRED AS A THICKENING AGENT FOR FLUIDS.
  14. POTASSIUM BICARBONATE\SODIUM ALGINATE [Concomitant]
     Active Substance: POTASSIUM BICARBONATE\SODIUM ALGINATE
     Dosage: ONE OR TWO 5ML SPOONFULS TO BE TAKEN THREE TIMES A DAY AFTER FOOD AND AT NIGHT WHEN REQUIRED

REACTIONS (1)
  - Hyperkalaemia [Recovered/Resolved]
